FAERS Safety Report 7716137-5 (Version None)
Quarter: 2011Q3

REPORT INFORMATION
  Report Type: 
  Country: None (occurrence: None)
  Receive Date: 20110829
  Receipt Date: 20110817
  Transmission Date: 20111222
  Serious: No
  Sender: FDA-Public Use
  Company Number: US-B.I. PHARMACEUTICALS,INC./RIDGEFIELD-2011-BP-20223BP

PATIENT
  Sex: Male

DRUGS (17)
  1. LEVOTHYROXINE SODIUM [Concomitant]
     Indication: HYPOTHYROIDISM
     Dates: start: 20000101
  2. HUMULIN R [Concomitant]
     Indication: TYPE 2 DIABETES MELLITUS
     Dates: start: 20070101
  3. METOPROLOL TARTRATE [Concomitant]
     Indication: HYPERTENSION
     Dates: start: 20050101
  4. DIGOXIN [Concomitant]
     Indication: ATRIAL FIBRILLATION
     Dates: start: 20050101
  5. VITAMIN TAB [Concomitant]
     Indication: VITAMIN D DEFICIENCY
     Dates: start: 20110101
  6. LORATADINE [Concomitant]
     Indication: SEASONAL ALLERGY
     Dates: start: 20060101
  7. PRADAXA [Suspect]
     Indication: ATRIAL FIBRILLATION
     Dosage: 300 MG
     Route: 048
     Dates: start: 20110809
  8. DILTIAZEM [Concomitant]
     Indication: HYPERTENSION
     Dates: start: 20030101
  9. FINASTERIDE [Concomitant]
     Indication: BENIGN PROSTATIC HYPERPLASIA
     Dates: start: 20050101
  10. ALLOPURINOL [Concomitant]
     Indication: GOUT
     Dates: start: 20090101
  11. HYDRALAZINE HCL [Concomitant]
     Indication: HYPERTENSION
     Dates: start: 20110113
  12. FUROSEMIDE [Concomitant]
     Indication: OEDEMA
     Dates: start: 20050101
  13. NIACIN [Concomitant]
     Indication: BLOOD CHOLESTEROL INCREASED
     Dates: start: 20010101
  14. OMEPRAZOLE [Concomitant]
     Indication: GASTROOESOPHAGEAL REFLUX DISEASE
     Dates: start: 20050101
  15. ASPIRIN [Concomitant]
     Indication: ATRIAL FIBRILLATION
     Dates: start: 20050101
  16. TAMSULOSIN HCL [Concomitant]
     Indication: BENIGN PROSTATIC HYPERPLASIA
     Dates: start: 20020101
  17. LOVASTATIN [Concomitant]
     Indication: BLOOD CHOLESTEROL INCREASED
     Dates: start: 20000101

REACTIONS (2)
  - CHEST PAIN [None]
  - ABDOMINAL PAIN [None]
